FAERS Safety Report 5623646-1 (Version None)
Quarter: 2008Q1

REPORT INFORMATION
  Report Type: 
  Country: None (occurrence: None)
  Receive Date: 20080212
  Receipt Date: 20080206
  Transmission Date: 20080703
  Serious: Yes (Hospitalization, Other)
  Sender: FDA-Public Use
  Company Number: US-BOEHRINGER INGELHEIM GMBH, GERMANY-2008-BP-01936BP

PATIENT
  Sex: Male

DRUGS (5)
  1. SPIRIVA [Suspect]
     Indication: CHRONIC OBSTRUCTIVE PULMONARY DISEASE
     Route: 055
     Dates: start: 20040101
  2. SPIRIVA [Suspect]
     Indication: EMPHYSEMA
  3. ADVAIR DISKUS 100/50 [Concomitant]
     Indication: CHRONIC OBSTRUCTIVE PULMONARY DISEASE
  4. ZETIA [Concomitant]
     Indication: BLOOD CHOLESTEROL INCREASED
  5. OXYGEN [Concomitant]

REACTIONS (5)
  - LOBAR PNEUMONIA [None]
  - LUNG NEOPLASM MALIGNANT [None]
  - NEUROPATHY PERIPHERAL [None]
  - PNEUMONIA [None]
  - SENSORY LOSS [None]
